FAERS Safety Report 11983632 (Version 1)
Quarter: 2016Q1

REPORT INFORMATION
  Report Type: Spontaneous
  Country: CH (occurrence: AU)
  Receive Date: 20160201
  Receipt Date: 20160201
  Transmission Date: 20160526
  Serious: Yes (Other)
  Sender: FDA-Public Use
  Company Number: CH-LPDUSPRD-20160071

PATIENT
  Age: 15 Year
  Sex: Female
  Weight: 61 kg

DRUGS (1)
  1. FERINJECT [Suspect]
     Active Substance: FERRIC CARBOXYMALTOSE
     Dosage: 770 MG
     Route: 041
     Dates: start: 20150923, end: 20150923

REACTIONS (2)
  - Seizure [Unknown]
  - Anaphylactoid reaction [Unknown]

NARRATIVE: CASE EVENT DATE: 20150923
